FAERS Safety Report 15945032 (Version 1)
Quarter: 2019Q1

REPORT INFORMATION
  Report Type: Spontaneous
  Country: FR (occurrence: FR)
  Receive Date: 20190211
  Receipt Date: 20190211
  Transmission Date: 20190417
  Serious: Yes (Death, Hospitalization, Other)
  Sender: FDA-Public Use
  Company Number: FR-SAKK-200619162GDDCAA

PATIENT
  Age: 19 Month
  Sex: Female
  Weight: 10 kg

DRUGS (13)
  1. FASTURTEC [Suspect]
     Active Substance: RASBURICASE
     Dosage: 1.5 MG, QD
     Route: 042
     Dates: start: 20060523, end: 20060526
  2. FASTURTEC [Suspect]
     Active Substance: RASBURICASE
     Dosage: UNK UNK, QD
     Route: 042
     Dates: start: 20060625, end: 20060625
  3. ZOPHREN [ONDANSETRON HYDROCHLORIDE] [Suspect]
     Active Substance: ONDANSETRON
     Indication: VOMITING
     Dosage: UNK
  4. DAUNOXOME [Suspect]
     Active Substance: DAUNORUBICIN CITRATE
     Indication: ACUTE MYELOID LEUKAEMIA
     Dosage: 100 MG, QD
     Route: 042
     Dates: start: 20060525, end: 20060525
  5. LENOGRASTIM [Suspect]
     Active Substance: LENOGRASTIM
     Indication: AGRANULOCYTOSIS
     Dosage: UNK UNK,QD
     Route: 042
     Dates: start: 20060524, end: 20060529
  6. FASTURTEC [Suspect]
     Active Substance: RASBURICASE
     Indication: TUMOUR LYSIS SYNDROME
     Dosage: 1.5 MG, QD
     Route: 042
     Dates: start: 20060519, end: 20060519
  7. FASTURTEC [Suspect]
     Active Substance: RASBURICASE
     Dosage: UNK UNK, QD
     Route: 042
     Dates: start: 20060621, end: 20060621
  8. ZOPHREN [ONDANSETRON HYDROCHLORIDE] [Suspect]
     Active Substance: ONDANSETRON
     Indication: NAUSEA
     Dosage: 4 MG, BID
     Route: 048
     Dates: start: 20060523
  9. ARACYTINE [Suspect]
     Active Substance: CYTARABINE
     Indication: ACUTE MYELOID LEUKAEMIA
     Dosage: 26 MG, QD
     Route: 042
     Dates: start: 20060524, end: 20060524
  10. BACTRIM [Concomitant]
     Active Substance: SULFAMETHOXAZOLE\TRIMETHOPRIM
     Indication: ANTIFUNGAL PROPHYLAXIS
     Dosage: UNK
     Dates: start: 20060524
  11. PLITICAN [Concomitant]
     Active Substance: ALIZAPRIDE HYDROCHLORIDE
     Dosage: UNK
     Dates: start: 20060524
  12. FLUDARABINE PHOSPHATE. [Suspect]
     Active Substance: FLUDARABINE PHOSPHATE
     Indication: ACUTE MYELOID LEUKAEMIA
     Dosage: UNK UNK,QD
     Route: 042
     Dates: start: 20060525, end: 20060529
  13. ARACYTINE [Suspect]
     Active Substance: CYTARABINE
     Dosage: 26 MG, QD
     Route: 037
     Dates: start: 20060524, end: 20060524

REACTIONS (11)
  - Pain [Fatal]
  - Vomiting [Fatal]
  - Accidental overdose [Fatal]
  - Cardiac failure [Fatal]
  - Product administration error [Fatal]
  - Fatigue [Fatal]
  - Respiratory distress [Fatal]
  - Cardiac arrest [Fatal]
  - Chills [Fatal]
  - Death [Fatal]
  - Aplasia [Fatal]

NARRATIVE: CASE EVENT DATE: 20060529
